FAERS Safety Report 4774232-7 (Version None)
Quarter: 2005Q3

REPORT INFORMATION
  Report Type: 
  Country: None (occurrence: None)
  Receive Date: 20050914
  Receipt Date: 20041129
  Transmission Date: 20060218
  Serious: Yes (Death)
  Sender: FDA-Public Use
  Company Number: 163-20785-04110622

PATIENT
  Age: 49 Year
  Sex: Male

DRUGS (2)
  1. THALOMID [Suspect]
     Indication: MULTIPLE MYELOMA
     Dosage: 150 MG, DAILY, ORAL;  DAILY, ORAL
     Route: 048
     Dates: start: 20040203, end: 20040601
  2. THALOMID [Suspect]
     Indication: MULTIPLE MYELOMA
     Dosage: 150 MG, DAILY, ORAL;  DAILY, ORAL
     Route: 048
     Dates: start: 20040816, end: 20041123

REACTIONS (2)
  - DEATH [None]
  - SEPSIS [None]
